FAERS Safety Report 4290264-X (Version None)
Quarter: 2004Q1

REPORT INFORMATION
  Report Type: 
  Country: None (occurrence: None)
  Receive Date: 20040209
  Receipt Date: 20040123
  Transmission Date: 20041129
  Serious: Yes (Hospitalization)
  Sender: FDA-Public Use
  Company Number: A-US2003-02204

PATIENT
  Age: 64 Year
  Sex: Female
  Weight: 45.8 kg

DRUGS (6)
  1. TRACLEER [Suspect]
     Indication: PULMONARY HYPERTENSION
     Dosage: 62.5 MG, BID, ORAL
     Route: 048
     Dates: start: 20020404, end: 20020430
  2. TRACLEER [Suspect]
     Indication: PULMONARY HYPERTENSION
     Dosage: 62.5 MG, BID, ORAL
     Route: 048
     Dates: start: 20020501, end: 20031201
  3. NEXIUM (AMLODIPINE BESILATE) [Concomitant]
  4. VIOXX [Concomitant]
  5. PREVACID [Concomitant]
  6. TRAMADOL (TRAMADOL) [Concomitant]

REACTIONS (10)
  - CARDIAC FAILURE CONGESTIVE [None]
  - DRUG INEFFECTIVE [None]
  - DYSPNOEA [None]
  - EROSIVE OESOPHAGITIS [None]
  - FATIGUE [None]
  - FLUID OVERLOAD [None]
  - HAEMOGLOBIN DECREASED [None]
  - OESOPHAGITIS [None]
  - SCLERODERMA [None]
  - UPPER GASTROINTESTINAL HAEMORRHAGE [None]
